FAERS Safety Report 9071970 (Version 2)
Quarter: 2013Q1

REPORT INFORMATION
  Report Type: Spontaneous
  Country: US (occurrence: US)
  Receive Date: 20130129
  Receipt Date: 20130201
  Transmission Date: 20140127
  Serious: Yes (Death)
  Sender: FDA-Public Use
  Company Number: PHEH2013US002144

PATIENT
  Sex: Female

DRUGS (2)
  1. EXJADE [Suspect]
     Indication: MYELODYSPLASTIC SYNDROME
     Dosage: 500 MG, UNK
  2. JAKAFI [Concomitant]

REACTIONS (3)
  - Myelofibrosis [Fatal]
  - Myelodysplastic syndrome [Fatal]
  - Malignant neoplasm progression [Fatal]
